FAERS Safety Report 8930113 (Version 1)
Quarter: 2012Q4

REPORT INFORMATION
  Report Type: 
  Country: IT (occurrence: IT)
  Receive Date: 20121128
  Receipt Date: 20121128
  Transmission Date: 20130627
  Serious: Yes (Hospitalization)
  Sender: FDA-Public Use
  Company Number: IT-BAYER-2012-124333

PATIENT
  Age: 67 Year
  Sex: Male

DRUGS (3)
  1. CARDIOASPIRIN [Suspect]
     Indication: ACUTE MYOCARDIAL INFARCTION
     Dosage: 100 mg, QD
     Route: 048
     Dates: start: 20101120, end: 20121114
  2. CLOPIDOGREL [Suspect]
     Indication: ACUTE MYOCARDIAL INFARCTION
     Dosage: Daily dose 75 mg
     Route: 048
     Dates: start: 20101120, end: 20121114
  3. PRITOR [Concomitant]
     Dosage: Daily dose 160 mg
     Route: 048

REACTIONS (1)
  - Gastrointestinal haemorrhage [Recovered/Resolved]
